FAERS Safety Report 10203909 (Version 2)
Quarter: 2014Q2

REPORT INFORMATION
  Report Type: Spontaneous
  Country: JP (occurrence: JP)
  Receive Date: 20140529
  Receipt Date: 20140613
  Transmission Date: 20141212
  Serious: No
  Sender: FDA-Public Use
  Company Number: JP-ELI_LILLY_AND_COMPANY-JP201405006580

PATIENT
  Age: 27 Year
  Sex: Female

DRUGS (3)
  1. ZYPREXA [Suspect]
     Indication: SCHIZOPHRENIA
     Dosage: 15 MG, QD
     Route: 048
     Dates: start: 2009
  2. AKINETON                           /00079502/ [Concomitant]
     Dosage: 3 MG, QD
     Route: 048
  3. ARTANE [Concomitant]
     Dosage: 6 MG, QD
     Route: 048

REACTIONS (1)
  - Genital haemorrhage [Not Recovered/Not Resolved]
